FAERS Safety Report 18676674 (Version 1)
Quarter: 2020Q4

REPORT INFORMATION
  Report Type: Spontaneous
  Country: GB (occurrence: GB)
  Receive Date: 20201229
  Receipt Date: 20201229
  Transmission Date: 20210114
  Serious: Yes (Other)
  Sender: FDA-Public Use
  Company Number: GB-PFIZER INC-2020506929

PATIENT
  Age: 67 Year
  Sex: Female
  Weight: 59.5 kg

DRUGS (1)
  1. CARBOPLATIN. [Suspect]
     Active Substance: CARBOPLATIN
     Indication: NEOPLASM MALIGNANT
     Dosage: 450 MG
     Route: 042
     Dates: start: 20201208, end: 20201208

REACTIONS (4)
  - Hypersensitivity [Recovered/Resolved]
  - Erythema [Unknown]
  - Pruritus [Unknown]
  - Chest discomfort [Unknown]

NARRATIVE: CASE EVENT DATE: 202012
